FAERS Safety Report 9154619 (Version 1)
Quarter: 2013Q1

REPORT INFORMATION
  Report Type: Spontaneous
  Country: US (occurrence: None)
  Receive Date: 20130305
  Receipt Date: 20130305
  Transmission Date: 20140127
  Serious: No
  Sender: FDA-Public Use
  Company Number: None

PATIENT
  Sex: Male

DRUGS (1)
  1. PLAVIX (CLOPIDOGREL) [Suspect]
     Indication: CORONARY ARTERY DISEASE
     Route: 048
     Dates: start: 2009

REACTIONS (1)
  - Dermatitis allergic [None]
